FAERS Safety Report 16533454 (Version 5)
Quarter: 2020Q3

REPORT INFORMATION
  Report Type: Report from Study
  Country: US (occurrence: US)
  Receive Date: 20190705
  Receipt Date: 20200703
  Transmission Date: 20201102
  Serious: Yes (Death, Life-Threatening, Other)
  Sender: FDA-Public Use
  Company Number: PHHY2019US152596

PATIENT
  Age: 51 Year
  Sex: Female

DRUGS (3)
  1. KYMRIAH [Suspect]
     Active Substance: TISAGENLECLEUCEL
     Indication: DIFFUSE LARGE B-CELL LYMPHOMA
     Dosage: UNK UNK, ONCE/SINGLE
     Route: 041
     Dates: start: 2019
  2. CYCLOPHOSPHAMIDE. [Concomitant]
     Active Substance: CYCLOPHOSPHAMIDE
     Indication: CHEMOTHERAPY
     Dosage: UNK
     Route: 065
  3. FLUDARABINE [Concomitant]
     Active Substance: FLUDARABINE PHOSPHATE
     Indication: CHEMOTHERAPY
     Dosage: UNK
     Route: 065

REACTIONS (14)
  - Hypotension [Unknown]
  - Pulseless electrical activity [Unknown]
  - Neutropenia [Unknown]
  - Pyrexia [Unknown]
  - Lymphocyte count decreased [Unknown]
  - Respiratory failure [Unknown]
  - Diffuse large B-cell lymphoma recurrent [Fatal]
  - Hypoxia [Unknown]
  - Cytopenia [Unknown]
  - Cardiac failure [Unknown]
  - Malignant neoplasm progression [Fatal]
  - Thrombocytopenia [Unknown]
  - Diffuse large B-cell lymphoma [Fatal]
  - Cytokine release syndrome [Unknown]
